FAERS Safety Report 9778036 (Version 1)
Quarter: 2013Q4

REPORT INFORMATION
  Report Type: Spontaneous
  Country: FR (occurrence: FR)
  Receive Date: 20131223
  Receipt Date: 20131223
  Transmission Date: 20140711
  Serious: Yes (Hospitalization)
  Sender: FDA-Public Use
  Company Number: FR-MERCK-1312FRA007611

PATIENT
  Age: 86 Year
  Sex: Female

DRUGS (13)
  1. SINEMET 100 MG / 10 MG COMPRIME SECABLE [Suspect]
     Indication: PARKINSON^S DISEASE
     Dosage: 100 MG, QD
     Route: 048
     Dates: end: 20131004
  2. NEURONTIN [Suspect]
     Indication: EPILEPSY
     Dosage: 200 MG, BID
     Route: 048
     Dates: start: 20130817, end: 20131004
  3. RISPERDAL [Concomitant]
     Indication: MANIA
     Dosage: 0.25 ML, BID
     Route: 048
     Dates: start: 20130817
  4. RISPERDAL [Concomitant]
     Dosage: UNK
  5. TEMESTA [Concomitant]
     Indication: ANXIETY
     Dosage: 2.5 MG, UNK
     Route: 048
  6. MEBEVERINE HYDROCHLORIDE [Concomitant]
  7. OMEPRAZOLE [Concomitant]
  8. DIAMICRON [Concomitant]
  9. SOTALOL HYDROCHLORIDE [Concomitant]
  10. IKOREL [Concomitant]
  11. PREVISCAN [Concomitant]
  12. ECONAZOLE [Concomitant]
  13. PENTASA [Concomitant]

REACTIONS (2)
  - Confusional state [Recovering/Resolving]
  - Abnormal behaviour [Recovering/Resolving]
